FAERS Safety Report 8972299 (Version 3)
Quarter: 2013Q1

REPORT INFORMATION
  Report Type: Report from Study
  Country: US (occurrence: US)
  Receive Date: 20121219
  Receipt Date: 20130118
  Transmission Date: 20140127
  Serious: Yes (Hospitalization)
  Sender: FDA-Public Use
  Company Number: US-BAYER-2012-131870

PATIENT
  Age: 87 Year
  Sex: Female
  Weight: 53.52 kg

DRUGS (12)
  1. SORAFENIB (RAF KINASE INHIBITOR) [Suspect]
     Indication: THYROID CANCER METASTATIC
     Dosage: UNK
     Dates: start: 20120614
  2. SORAFENIB (RAF KINASE INHIBITOR) [Suspect]
     Indication: THYROID CANCER METASTATIC
     Dosage: 200 MG, BID
     Route: 048
     Dates: start: 20121210, end: 20121211
  3. PLACEBO [Suspect]
     Indication: THYROID CANCER METASTATIC
  4. ALPRAZOLAM [Concomitant]
     Indication: ANXIETY
     Dosage: DAILY DOSE .5 MG
     Route: 048
     Dates: start: 20121129
  5. LEVOTHYROXIN [Concomitant]
     Indication: HYPOTHYROIDISM
     Dosage: DAILY DOSE 137 ?G
     Route: 048
     Dates: start: 20121001
  6. ALBUTEROL SULFATE [Concomitant]
     Indication: ASTHMA
     Dosage: 2.5 MG/3ML
     Route: 055
     Dates: start: 20120922
  7. CALCIUM CARBONATE W/VITAMIN D NOS [Concomitant]
     Indication: SUPPLEMENTATION THERAPY
     Dosage: 600
     Route: 048
     Dates: start: 20120806
  8. ADVAIR [Concomitant]
     Indication: ASTHMA
     Dosage: 250-50 MG
     Route: 055
     Dates: start: 20050923
  9. LOSARTAN [Concomitant]
     Indication: HYPERTENSION
     Dosage: DAILY DOSE 50 MG
     Route: 048
     Dates: start: 20080923
  10. SINGULAIR [Concomitant]
     Indication: ASTHMA
     Dosage: DAILY DOSE 10 MG
     Route: 048
     Dates: start: 20000923
  11. NITROFURANT MACRO [Concomitant]
     Indication: URINARY TRACT INFECTION
     Dosage: DAILY DOSE 50 MG
     Route: 048
     Dates: start: 20110606
  12. OMEPRAZOLE [Concomitant]
     Indication: DYSPEPSIA
     Dosage: DAILY DOSE 20 MG
     Route: 048
     Dates: start: 20070923

REACTIONS (1)
  - Jugular vein thrombosis [Recovered/Resolved]
